FAERS Safety Report 13216235 (Version 2)
Quarter: 2017Q1

REPORT INFORMATION
  Report Type: Spontaneous
  Country: FR (occurrence: FR)
  Receive Date: 20170209
  Receipt Date: 20170308
  Transmission Date: 20170428
  Serious: Yes (Hospitalization, Other)
  Sender: FDA-Public Use
  Company Number: FR-AMGEN-FRASP2017018597

PATIENT
  Age: 76 Year
  Sex: Male

DRUGS (11)
  1. EUPANTOL [Concomitant]
     Active Substance: PANTOPRAZOLE SODIUM
  2. LATANOPROST. [Concomitant]
     Active Substance: LATANOPROST
  3. GELTIM [Concomitant]
     Active Substance: TIMOLOL MALEATE
  4. MIMPARA [Suspect]
     Active Substance: CINACALCET HYDROCHLORIDE
     Indication: HYPERPARATHYROIDISM PRIMARY
     Dosage: 60 MG, BID
     Route: 048
     Dates: start: 201610
  5. LERCAN [Concomitant]
     Active Substance: LERCANIDIPINE
     Dosage: 20 MG, UNK
  6. RAMIPRIL. [Concomitant]
     Active Substance: RAMIPRIL
  7. PAROXETINE. [Concomitant]
     Active Substance: PAROXETINE
  8. TARDYFERON [Concomitant]
     Active Substance: FERROUS SULFATE
     Dosage: 80 MG, UNK
  9. ZYLORIC [Concomitant]
     Active Substance: ALLOPURINOL
     Dosage: 100 MG, UNK
  10. MIMPARA [Suspect]
     Active Substance: CINACALCET HYDROCHLORIDE
     Dosage: 90 MG, BID
     Route: 048
  11. XARELTO [Concomitant]
     Active Substance: RIVAROXABAN
     Dosage: 20 MG, UNK

REACTIONS (2)
  - Hypercalcaemia [Not Recovered/Not Resolved]
  - Drug effect decreased [Not Recovered/Not Resolved]

NARRATIVE: CASE EVENT DATE: 20161013
